FAERS Safety Report 5135694-9 (Version None)
Quarter: 2006Q4

REPORT INFORMATION
  Report Type: 
  Country: None (occurrence: None)
  Receive Date: 20061024
  Receipt Date: 20061024
  Transmission Date: 20070319
  Serious: No
  Sender: FDA-Public Use
  Company Number: None

PATIENT
  Age: 46 Year
  Sex: Male
  Weight: 87.4 kg

DRUGS (7)
  1. AMOXICILLIN [Suspect]
     Indication: URINARY TRACT INFECTION
     Dosage: 500 MG PO Q 12 H
     Route: 048
     Dates: start: 20060911, end: 20060918
  2. SPIRONOLACTONE [Concomitant]
  3. AMLODIPINE [Concomitant]
  4. MULTIVITAMIN W/ MINERALS [Concomitant]
  5. THIAMINE [Concomitant]
  6. DIAZEPAM [Concomitant]
  7. TRAMADOL HCL [Concomitant]

REACTIONS (2)
  - RASH ERYTHEMATOUS [None]
  - RASH PRURITIC [None]
